FAERS Safety Report 8892910 (Version 1)
Quarter: 2012Q4

REPORT INFORMATION
  Report Type: Spontaneous
  Country: FR (occurrence: None)
  Receive Date: 20121101
  Receipt Date: 20121101
  Transmission Date: 20130627
  Serious: Yes (Other)
  Sender: FDA-Public Use
  Company Number: 2012RR-61490

PATIENT
  Age: 78 Year
  Sex: Female

DRUGS (3)
  1. PARACETAMOL (UNKNOWN) [Suspect]
     Indication: BRONCHITIS CHRONIC
  2. CARBOCISTEINE [Suspect]
     Indication: BRONCHITIS CHRONIC
  3. CARBOCISTEINE [Suspect]
     Indication: BRONCHITIS CHRONIC

REACTIONS (1)
  - Drug eruption [None]
